FAERS Safety Report 18126231 (Version 8)
Quarter: 2021Q2

REPORT INFORMATION
  Report Type: Report from Study
  Country: None (occurrence: CO)
  Receive Date: 20200808
  Receipt Date: 20210409
  Transmission Date: 20210717
  Serious: Yes (Life-Threatening, Hospitalization, Other)
  Sender: FDA-Public Use
  Company Number: CO-ABBVIE-19K-036-2944561-00

PATIENT
  Age: 33 Year
  Sex: Female
  Weight: 54 kg

DRUGS (4)
  1. HUMIRA [Suspect]
     Active Substance: ADALIMUMAB
     Route: 058
     Dates: start: 2020, end: 20200915
  2. HUMIRA [Suspect]
     Active Substance: ADALIMUMAB
     Route: 058
     Dates: start: 201909, end: 202006
  3. HUMIRA [Suspect]
     Active Substance: ADALIMUMAB
     Indication: CROHN^S DISEASE
     Route: 058
     Dates: start: 20180818, end: 201909
  4. HUMIRA [Suspect]
     Active Substance: ADALIMUMAB
     Route: 058
     Dates: start: 2020, end: 20201006

REACTIONS (31)
  - Anastomotic fistula [Recovered/Resolved]
  - Blood pressure decreased [Recovered/Resolved]
  - Abscess [Unknown]
  - Procedural complication [Recovering/Resolving]
  - Amnesia [Recovering/Resolving]
  - Myocardial infarction [Recovering/Resolving]
  - Productive cough [Recovered/Resolved]
  - Fistula inflammation [Recovered/Resolved]
  - Aphasia [Recovered/Resolved]
  - Medical procedure [Unknown]
  - Nervous system disorder [Unknown]
  - COVID-19 [Recovered/Resolved]
  - Fistula [Recovered/Resolved]
  - Vision blurred [Recovering/Resolving]
  - Pulmonary oedema [Recovering/Resolving]
  - Neurodegenerative disorder [Unknown]
  - Cerebral disorder [Unknown]
  - Gait inability [Recovering/Resolving]
  - Alopecia [Recovered/Resolved]
  - Cardiac arrest [Recovered/Resolved]
  - Dyspnoea [Recovering/Resolving]
  - Joint range of motion decreased [Recovering/Resolving]
  - Soft tissue infection [Unknown]
  - Purulent discharge [Recovering/Resolving]
  - Respiratory arrest [Recovering/Resolving]
  - Cerebral infarction [Recovering/Resolving]
  - Purulent discharge [Recovering/Resolving]
  - Bacterial infection [Unknown]
  - Lung perforation [Recovering/Resolving]
  - Pneumothorax [Recovering/Resolving]
  - Pyrexia [Recovered/Resolved]

NARRATIVE: CASE EVENT DATE: 20190901
